FAERS Safety Report 5013881-8 (Version None)
Quarter: 2006Q2

REPORT INFORMATION
  Report Type: 
  Country: None (occurrence: None)
  Receive Date: 20060526
  Receipt Date: 20060526
  Transmission Date: 20061013
  Serious: Yes (Other)
  Sender: FDA-Public Use
  Company Number: None

PATIENT
  Age: 46 Year
  Sex: Female
  Weight: 65.7716 kg

DRUGS (11)
  1. NEULASTA [Suspect]
     Indication: CHEMOTHERAPY
     Dosage: PER LABEL     IM
     Route: 030
     Dates: start: 20030315, end: 20030502
  2. NEULASTA [Suspect]
     Indication: NEOPLASM MALIGNANT
     Dosage: PER LABEL     IM
     Route: 030
     Dates: start: 20030315, end: 20030502
  3. NEULASTA [Suspect]
     Indication: WHITE BLOOD CELL COUNT INCREASED
     Dosage: PER LABEL     IM
     Route: 030
     Dates: start: 20030315, end: 20030502
  4. ADRIAMYCIN PFS [Concomitant]
  5. CYTOXAN [Concomitant]
  6. CORTISONE ACETATE TAB [Concomitant]
  7. OTHER ANTINAUSEA DRUGS -?- [Concomitant]
  8. NEURONTIN [Concomitant]
  9. CYMBALTA [Concomitant]
  10. FENTANYL [Concomitant]
  11. OXYCODONE HCL [Concomitant]

REACTIONS (6)
  - BONE MARROW DISORDER [None]
  - FATIGUE [None]
  - INFLUENZA LIKE ILLNESS [None]
  - LYMPHOPENIA [None]
  - NEUTROPHILIA [None]
  - PYREXIA [None]
